FAERS Safety Report 24054191 (Version 1)
Quarter: 2024Q3

REPORT INFORMATION
  Report Type: Spontaneous
  Country: GB (occurrence: GB)
  Receive Date: 20240705
  Receipt Date: 20240705
  Transmission Date: 20241017
  Serious: Yes (Hospitalization, Other)
  Sender: ELI LILLY AND CO
  Company Number: None

PATIENT
  Age: 59 Year
  Sex: Female
  Weight: 90 kg

DRUGS (3)
  1. MOUNJARO [Suspect]
     Active Substance: TIRZEPATIDE
     Indication: Weight control
     Dosage: UNK, WEEKLY (1/W)
     Route: 065
     Dates: start: 20240509
  2. MOUNJARO [Suspect]
     Active Substance: TIRZEPATIDE
     Dosage: UNK, WEEKLY (1/W)
     Route: 065
  3. ESTRADIOL [Concomitant]
     Active Substance: ESTRADIOL
     Indication: Hormone replacement therapy
     Dosage: UNK
     Dates: start: 20180701

REACTIONS (2)
  - Hypertension [Recovering/Resolving]
  - Liver injury [Recovering/Resolving]

NARRATIVE: CASE EVENT DATE: 20240618
